FAERS Safety Report 9416812 (Version 1)
Quarter: 2013Q3

REPORT INFORMATION
  Report Type: Spontaneous
  Country: US (occurrence: US)
  Receive Date: 20130724
  Receipt Date: 20130724
  Transmission Date: 20140515
  Serious: Yes (Death, Hospitalization)
  Sender: FDA-Public Use
  Company Number: US-MYLANLABS-2013S1015622

PATIENT
  Age: 28 Year
  Sex: Female
  Weight: 70 kg

DRUGS (6)
  1. IBUPROFEN [Suspect]
     Indication: LIGAMENT SPRAIN
     Route: 065
  2. IBUPROFEN [Suspect]
     Indication: CONTUSION
     Route: 065
  3. METAXALONE [Suspect]
     Route: 065
  4. METHOCARBAMOL [Suspect]
     Dosage: 750MG, 4 PER DAY
     Route: 065
  5. VALDECOXIB [Suspect]
     Dosage: 10MG DAILY
     Route: 065
  6. CYCLOBENZAPRINE [Concomitant]
     Dosage: NIGHTLY
     Route: 065

REACTIONS (6)
  - Hypertension [Fatal]
  - Renal failure [Fatal]
  - Cerebral haemorrhage [Fatal]
  - Gastritis [Unknown]
  - Hyperglycaemia [Fatal]
  - Respiratory failure [Fatal]
